FAERS Safety Report 9890908 (Version 1)
Quarter: 2014Q1

REPORT INFORMATION
  Report Type: Spontaneous
  Country: US (occurrence: None)
  Receive Date: 20140210
  Receipt Date: 20140210
  Transmission Date: 20141002
  Serious: Yes (Other)
  Sender: FDA-Public Use
  Company Number: None

PATIENT
  Age: 49 Year
  Sex: Male
  Weight: 80.74 kg

DRUGS (2)
  1. PRAVASTIN [Suspect]
     Indication: CARDIOVASCULAR DISORDER
     Dosage: 1 TABLET AT BEDTIME MOUTH
     Route: 048
     Dates: start: 20130506
  2. PRAVASTIN [Suspect]
     Indication: BLOOD CHOLESTEROL
     Dosage: 1 TABLET AT BEDTIME MOUTH
     Route: 048
     Dates: start: 20130506

REACTIONS (5)
  - Dizziness [None]
  - Muscle spasms [None]
  - Fatigue [None]
  - Photosensitivity reaction [None]
  - Muscle tightness [None]
